FAERS Safety Report 5130577-2 (Version None)
Quarter: 2006Q4

REPORT INFORMATION
  Report Type: 
  Country: None (occurrence: None)
  Receive Date: 20061017
  Receipt Date: 20061017
  Transmission Date: 20070319
  Serious: Yes (Hospitalization, Other)
  Sender: FDA-Public Use
  Company Number: None

PATIENT
  Age: 74 Year
  Sex: Male

DRUGS (9)
  1. GEMFIBROZIL [Suspect]
     Indication: HYPERCHOLESTEROLAEMIA
  2. VYTORIN [Suspect]
  3. COUMADIN [Concomitant]
  4. TOPROL-XL [Concomitant]
  5. LISINOPRIL [Concomitant]
  6. ALLOPURINOL [Concomitant]
  7. ASPIRIN [Concomitant]
  8. GLUCOPHAGE [Concomitant]
  9. CALCIUM CARBONATE [Concomitant]

REACTIONS (1)
  - RHABDOMYOLYSIS [None]
